FAERS Safety Report 8088108-3 (Version None)
Quarter: 2012Q1

REPORT INFORMATION
  Report Type: 
  Country: None (occurrence: None)
  Receive Date: 20120131
  Receipt Date: 20120124
  Transmission Date: 20120608
  Serious: Yes (Hospitalization)
  Sender: FDA-Public Use
  Company Number: US-BIOGENIDEC-2011BI039049

PATIENT
  Age: 47 Year
  Sex: Female
  Weight: 98 kg

DRUGS (17)
  1. CYMBALTA [Concomitant]
     Route: 048
  2. TRILEPTAL [Concomitant]
     Route: 048
  3. CHOLECALCIFEROL [Concomitant]
     Dosage: DOSE UNIT:5000
     Route: 048
  4. ANTIVERT [Concomitant]
     Route: 048
  5. PROCHLORPERAZINE [Concomitant]
     Route: 048
  6. REQUIP [Concomitant]
     Route: 048
  7. NORCO [Concomitant]
     Route: 048
  8. REGLAN [Concomitant]
     Route: 042
  9. TYSABRI [Suspect]
     Indication: MULTIPLE SCLEROSIS
     Route: 042
     Dates: start: 20090806, end: 20110908
  10. IBUPROFEN [Concomitant]
     Route: 048
  11. METHYLIN [Concomitant]
     Route: 048
  12. NORCO [Concomitant]
     Route: 048
  13. BENADRYL [Concomitant]
     Route: 048
  14. MULTI-VITAMIN [Concomitant]
     Route: 048
  15. PRILOSEC [Concomitant]
     Route: 048
  16. TRILEPTAL [Concomitant]
     Route: 048
  17. CALCIUM GLUCONATE [Concomitant]
     Route: 048

REACTIONS (1)
  - PANCREATITIS ACUTE [None]
